FAERS Safety Report 7559115-1 (Version None)
Quarter: 2011Q2

REPORT INFORMATION
  Report Type: 
  Country: None (occurrence: None)
  Receive Date: 20110613
  Receipt Date: 20110607
  Transmission Date: 20111010
  Serious: Yes (Hospitalization, Disabling, Other)
  Sender: FDA-Public Use
  Company Number: 2009SP017681

PATIENT
  Age: 41 Year
  Sex: Female
  Weight: 47.6277 kg

DRUGS (10)
  1. NUVARING [Suspect]
     Indication: MENSTRUAL CYCLE MANAGEMENT
     Dosage: 1 DF; QM; VAG
     Route: 067
     Dates: start: 20030901
  2. NUVARING [Suspect]
     Indication: MENSTRUAL CYCLE MANAGEMENT
     Dosage: 1 DF; QM; VAG
     Route: 067
     Dates: start: 20050101
  3. NUVARING [Suspect]
     Indication: MENSTRUAL CYCLE MANAGEMENT
     Dosage: 1 DF; QM; VAG
     Route: 067
     Dates: start: 20040901
  4. NASACORT [Concomitant]
  5. AMITRIPTYLINE HCL [Concomitant]
  6. TYLENOL-500 [Concomitant]
  7. PARAFON FORTE [Concomitant]
  8. MAXALT [Concomitant]
  9. TOPAMAX [Concomitant]
  10. MAXITRIPTYLINE [Concomitant]

REACTIONS (39)
  - CEREBROVASCULAR ACCIDENT [None]
  - CEREBRAL ARTERY OCCLUSION [None]
  - CHEST PAIN [None]
  - INFUSION SITE ERYTHEMA [None]
  - ATELECTASIS [None]
  - UPPER LIMB FRACTURE [None]
  - OXYGEN SATURATION DECREASED [None]
  - GAIT DISTURBANCE [None]
  - ROTATOR CUFF SYNDROME [None]
  - CONVULSION [None]
  - DEPRESSION [None]
  - ISCHAEMIC CEREBRAL INFARCTION [None]
  - WHITE BLOOD CELL COUNT INCREASED [None]
  - COMPLEX REGIONAL PAIN SYNDROME [None]
  - CYST [None]
  - SKIN DISORDER [None]
  - HUMERUS FRACTURE [None]
  - VAGINAL DISCHARGE [None]
  - MIGRAINE [None]
  - PROTEIN C DECREASED [None]
  - BLOOD HOMOCYSTEINE DECREASED [None]
  - PAIN IN EXTREMITY [None]
  - OSTEOPENIA [None]
  - DRUG SCREEN POSITIVE [None]
  - INSOMNIA [None]
  - HYPOMENORRHOEA [None]
  - SHIFT TO THE LEFT [None]
  - PROTEIN S DECREASED [None]
  - ABDOMINAL PAIN [None]
  - HAEMORRHAGIC CEREBRAL INFARCTION [None]
  - SINUSITIS [None]
  - PROTEIN C INCREASED [None]
  - INTRACRANIAL PRESSURE INCREASED [None]
  - BRAIN MIDLINE SHIFT [None]
  - ANXIETY [None]
  - BLOOD POTASSIUM DECREASED [None]
  - PELVIC PAIN [None]
  - OSTEOPOROSIS [None]
  - URINARY TRACT INFECTION [None]
